FAERS Safety Report 24128295 (Version 1)
Quarter: 2024Q3

REPORT INFORMATION
  Report Type: Spontaneous
  Country: CA (occurrence: None)
  Receive Date: 20240723
  Receipt Date: 20240723
  Transmission Date: 20241017
  Serious: Yes (Other)
  Sender: ASTRAZENECA
  Company Number: 2024A162435

PATIENT

DRUGS (5)
  1. BUDESONIDE [Suspect]
     Active Substance: BUDESONIDE
     Indication: Product used for unknown indication
     Dosage: UNKNOWN UNKNOWN
     Route: 055
  2. MESALAMINE [Suspect]
     Active Substance: MESALAMINE
     Indication: Product used for unknown indication
  3. FENTANYL CITRATE [Concomitant]
     Active Substance: FENTANYL CITRATE
  4. PREDNISONE [Concomitant]
     Active Substance: PREDNISONE
  5. SALOFALK [Concomitant]

REACTIONS (1)
  - Colitis [Not Recovered/Not Resolved]
